FAERS Safety Report 15310519 (Version 1)
Quarter: 2018Q3

REPORT INFORMATION
  Report Type: Spontaneous
  Country: US (occurrence: US)
  Receive Date: 20180813
  Receipt Date: 20180813
  Transmission Date: 20181010
  Serious: Yes (Death, Hospitalization)
  Sender: FDA-Public Use
  Company Number: None

PATIENT
  Age: 85 Year
  Sex: Male
  Weight: 94.5 kg

DRUGS (16)
  1. FLONASE [Concomitant]
     Active Substance: FLUTICASONE PROPIONATE
  2. PRESERVISION AREDS [Concomitant]
     Active Substance: MINERALS\VITAMINS
  3. LEXISCAN [Suspect]
     Active Substance: REGADENOSON
     Indication: CARDIAC STRESS TEST
     Route: 042
     Dates: start: 20160601, end: 20160601
  4. VITAMIN D3 [Concomitant]
     Active Substance: CHOLECALCIFEROL
  5. FERROUS SULFATE. [Concomitant]
     Active Substance: FERROUS SULFATE
  6. ALLOPURINOL. [Concomitant]
     Active Substance: ALLOPURINOL
  7. LISINOPRIL. [Concomitant]
     Active Substance: LISINOPRIL
  8. METAMUCIL [Concomitant]
     Active Substance: PLANTAGO SEED
  9. LVEOTHYROXINE [Concomitant]
  10. VITAMIN B12 [Concomitant]
     Active Substance: CYANOCOBALAMIN
  11. TYLENOL [Concomitant]
     Active Substance: ACETAMINOPHEN
  12. ASPIRIN. [Concomitant]
     Active Substance: ASPIRIN
  13. CELEXA [Concomitant]
     Active Substance: CITALOPRAM HYDROBROMIDE
  14. METOPROLOL. [Concomitant]
     Active Substance: METOPROLOL
  15. GLUCOSAMINE SULFATE [Concomitant]
     Active Substance: GLUCOSAMINE SULFATE
  16. VITAMIN A.C.E ZINC?COPPER [Concomitant]

REACTIONS (6)
  - Eating disorder [None]
  - Eye movement disorder [None]
  - Wrong technique in product usage process [None]
  - Glycosylated haemoglobin increased [None]
  - Procedural complication [None]
  - Seizure [None]

NARRATIVE: CASE EVENT DATE: 20160601
